FAERS Safety Report 4428667-2 (Version None)
Quarter: 2004Q3

REPORT INFORMATION
  Report Type: 
  Country: None (occurrence: None)
  Receive Date: 20040818
  Receipt Date: 20030929
  Transmission Date: 20050211
  Serious: No
  Sender: FDA-Public Use
  Company Number: US-BRISTOL-MYERS SQUIBB COMPANY-12396933

PATIENT
  Age: 65 Year
  Sex: Female

DRUGS (4)
  1. TEQUIN [Suspect]
     Route: 048
     Dates: start: 20030902, end: 20031213
  2. DARVOCET-N 100 [Concomitant]
  3. VIOXX [Concomitant]
  4. ANTIVERT [Concomitant]

REACTIONS (1)
  - TENDONITIS [None]
